FAERS Safety Report 10733443 (Version 1)
Quarter: 2015Q1

REPORT INFORMATION
  Report Type: Spontaneous
  Country: CA (occurrence: CA)
  Receive Date: 20150123
  Receipt Date: 20150123
  Transmission Date: 20150721
  Serious: Yes (Other)
  Sender: FDA-Public Use
  Company Number: CA-MYLANLABS-2015M1001305

PATIENT

DRUGS (3)
  1. FENTANYL. [Suspect]
     Active Substance: FENTANYL
     Dosage: 5 MICROG/ML
     Route: 037
  2. BUPIVACAINE [Suspect]
     Active Substance: BUPIVACAINE
     Dosage: THROUGH CATHETER 0.1% BUPIVACAINE 5 ML
     Route: 037
  3. LIDOCAINE. [Suspect]
     Active Substance: LIDOCAINE
     Dosage: 2% LIDOCAINE 3 ML AS TEST DOSE
     Route: 037

REACTIONS (4)
  - Dyspnoea [Recovered/Resolved]
  - Incorrect route of drug administration [Recovered/Resolved]
  - Exposure during pregnancy [Recovered/Resolved]
  - Hypoaesthesia [Recovered/Resolved]
